FAERS Safety Report 4512119-5 (Version None)
Quarter: 2004Q4

REPORT INFORMATION
  Report Type: 
  Country: None (occurrence: None)
  Receive Date: 20041129
  Receipt Date: 20041115
  Transmission Date: 20050328
  Serious: Yes (Other)
  Sender: FDA-Public Use
  Company Number: BE-ROCHE-386300

PATIENT
  Age: 51 Year
  Sex: Male
  Weight: 98.8 kg

DRUGS (8)
  1. DACLIZUMAB [Suspect]
     Route: 042
     Dates: start: 20041014
  2. MYCOPHENOLATE MOFETIL [Suspect]
     Route: 048
     Dates: start: 20041014
  3. TACROLIMUS [Suspect]
     Route: 048
     Dates: start: 20041014
  4. TACROLIMUS [Suspect]
     Route: 048
  5. METHYLPREDNISOLONE [Suspect]
     Route: 048
     Dates: start: 20041014
  6. TERAZOSINE [Concomitant]
     Route: 048
     Dates: start: 20041022
  7. LISINOPRIL [Concomitant]
     Route: 048
     Dates: start: 20041019
  8. METOPROLOL [Concomitant]
     Route: 048
     Dates: start: 20041017

REACTIONS (2)
  - NEOPLASM MALIGNANT [None]
  - RENAL CELL CARCINOMA STAGE UNSPECIFIED [None]
